FAERS Safety Report 24320149 (Version 1)
Quarter: 2024Q3

REPORT INFORMATION
  Report Type: Spontaneous
  Country: US (occurrence: US)
  Receive Date: 20240914
  Receipt Date: 20240914
  Transmission Date: 20241017
  Serious: No
  Sender: AMGEN
  Company Number: US-AMGEN-USASP2024182823

PATIENT
  Age: 71 Year
  Sex: Female
  Weight: 78 kg

DRUGS (2)
  1. MVASI [Suspect]
     Active Substance: BEVACIZUMAB-AWWB
     Indication: Glioblastoma
     Dosage: DOSE ORDERED: 576 MG, DOSE REQUESTED: 600 MG (400 MG X ONE VIAL:)
     Route: 065
  2. MVASI [Suspect]
     Active Substance: BEVACIZUMAB-AWWB
     Dosage: DOSE ORDERED: 576 MG, DOSE REQUESTED: 600 MG(100 MG X TWO VIALS)
     Route: 065

REACTIONS (1)
  - Blood pressure increased [Unknown]

NARRATIVE: CASE EVENT DATE: 20240912
